FAERS Safety Report 6314593-0 (Version None)
Quarter: 2009Q3

REPORT INFORMATION
  Report Type: 
  Country: None (occurrence: None)
  Receive Date: 20090819
  Receipt Date: 20090810
  Transmission Date: 20100115
  Serious: Yes (Other)
  Sender: FDA-Public Use
  Company Number: US-ELI_LILLY_AND_COMPANY-US200907003532

PATIENT
  Sex: Male
  Weight: 89.796 kg

DRUGS (7)
  1. ALIMTA [Suspect]
     Indication: NON-SMALL CELL LUNG CANCER
     Dosage: UNK, OTHER; Q 4 WEEKS
     Dates: start: 20051020
  2. AVASTIN [Concomitant]
     Indication: NON-SMALL CELL LUNG CANCER
     Dates: start: 20060601, end: 20061001
  3. ASPIRIN [Concomitant]
  4. ATENOLOL [Concomitant]
  5. ALLEGRA [Concomitant]
  6. FOLIC ACID [Concomitant]
     Indication: VITAMIN SUPPLEMENTATION
  7. VITAMIN B-12 [Concomitant]
     Indication: VITAMIN SUPPLEMENTATION

REACTIONS (2)
  - HYPOGAMMAGLOBULINAEMIA [None]
  - RESPIRATORY TRACT INFECTION [None]
